FAERS Safety Report 23262716 (Version 2)
Quarter: 2023Q4

REPORT INFORMATION
  Report Type: Spontaneous
  Country: US (occurrence: US)
  Receive Date: 20231205
  Receipt Date: 20231215
  Transmission Date: 20240110
  Serious: Yes (Hospitalization, Other)
  Sender: FDA-Public Use
  Company Number: US-MLMSERVICE-20231116-4669394-1

PATIENT
  Age: 30 Year
  Sex: Female

DRUGS (1)
  1. TRIAMCINOLONE [Suspect]
     Active Substance: TRIAMCINOLONE
     Indication: Psoriasis
     Route: 061

REACTIONS (6)
  - Adrenal insufficiency [Recovering/Resolving]
  - Cushing^s syndrome [Recovering/Resolving]
  - Cushingoid [Recovering/Resolving]
  - Lipohypertrophy [Recovering/Resolving]
  - Acanthosis nigricans [Recovering/Resolving]
  - Plethoric face [Recovering/Resolving]
